FAERS Safety Report 5008458-4 (Version None)
Quarter: 2006Q2

REPORT INFORMATION
  Report Type: 
  Country: None (occurrence: None)
  Receive Date: 20060518
  Receipt Date: 20060502
  Transmission Date: 20061013
  Serious: Yes (Hospitalization)
  Sender: FDA-Public Use
  Company Number: FR200601004163

PATIENT
  Age: 49 Year
  Sex: Female

DRUGS (6)
  1. PROZAC [Suspect]
     Indication: DYSTHYMIC DISORDER
     Dosage: 20 MG, ORAL
     Route: 048
     Dates: start: 20040201, end: 20040229
  2. XANAX /USA/ (ALPRAZOLAM) [Concomitant]
  3. STILNOX /FRA/ (ZOLPIDEM) [Concomitant]
  4. CODOLIPRANE (CODEINE PHOSPHATE, PARACETAMOL) [Concomitant]
  5. CELECTOL [Concomitant]
  6. CORTICOSTEROIDS [Concomitant]

REACTIONS (1)
  - GRAND MAL CONVULSION [None]
